APPROVED DRUG PRODUCT: DEFERASIROX
Active Ingredient: DEFERASIROX
Strength: 90MG
Dosage Form/Route: GRANULE;ORAL
Application: A213374 | Product #001 | TE Code: AB
Applicant: ALKEM LABORATORIES LTD
Approved: Jul 14, 2020 | RLD: No | RS: No | Type: RX